FAERS Safety Report 7821564 (Version 4)
Quarter: 2018Q3

REPORT INFORMATION
  Report Type: Report from Study
  Country: DE (occurrence: DE)
  Receive Date: 20110222
  Receipt Date: 20180727
  Transmission Date: 20181010
  Serious: Yes (Hospitalization, Other)
  Sender: FDA-Public Use
  Company Number: DE-ROCHE-760450

PATIENT
  Age: 57 Year
  Sex: Female
  Weight: 62.5 kg

DRUGS (16)
  1. BEVACIZUMAB. [Suspect]
     Active Substance: BEVACIZUMAB
     Route: 042
     Dates: start: 20100722, end: 20100722
  2. PACLITAXEL. [Concomitant]
     Active Substance: PACLITAXEL
     Route: 065
     Dates: start: 20100901
  3. ATACAND [Concomitant]
     Active Substance: CANDESARTAN CILEXETIL
     Route: 065
     Dates: start: 20100819
  4. PACLITAXEL. [Concomitant]
     Active Substance: PACLITAXEL
     Route: 065
     Dates: start: 20100811
  5. VERAPAMIL [Concomitant]
     Active Substance: VERAPAMIL HYDROCHLORIDE
     Route: 065
     Dates: start: 1998
  6. LISODURA [Concomitant]
     Route: 065
     Dates: start: 1998
  7. PACLITAXEL. [Concomitant]
     Active Substance: PACLITAXEL
     Indication: BREAST CANCER
     Route: 065
     Dates: start: 20100722
  8. PACLITAXEL. [Concomitant]
     Active Substance: PACLITAXEL
     Route: 065
     Dates: start: 20100923
  9. PACLITAXEL. [Concomitant]
     Active Substance: PACLITAXEL
     Route: 065
     Dates: start: 20101013
  10. NORSPAN (GERMANY) [Concomitant]
     Indication: BONE PAIN
     Dosage: WEEKS
     Route: 065
     Dates: start: 20110419
  11. BEVACIZUMAB. [Suspect]
     Active Substance: BEVACIZUMAB
     Route: 042
  12. TILIDIN [Concomitant]
     Active Substance: NALOXONE HYDROCHLORIDE\TILIDINE HYDROCHLORIDE
     Indication: BONE PAIN
     Dosage: DAYS
     Route: 065
     Dates: start: 20110309
  13. PACLITAXEL. [Concomitant]
     Active Substance: PACLITAXEL
     Route: 065
     Dates: start: 20101103
  14. BEVACIZUMAB. [Suspect]
     Active Substance: BEVACIZUMAB
     Dosage: FREQUENCY: NOT REPORTED.
     Route: 042
     Dates: start: 20100722, end: 20110511
  15. BEVACIZUMAB. [Suspect]
     Active Substance: BEVACIZUMAB
     Indication: BREAST CANCER
     Dosage: FREQUENCY: NOT REPORTED.
     Route: 042
  16. UNAT [Concomitant]
     Active Substance: TORSEMIDE
     Indication: OEDEMA PERIPHERAL
     Route: 048
     Dates: start: 20110526

REACTIONS (11)
  - Neutropenia [Recovered/Resolved]
  - Hypercalcaemia [Recovered/Resolved]
  - Hyperventilation [Recovered/Resolved]
  - Headache [Recovered/Resolved]
  - Cough [Not Recovered/Not Resolved]
  - Visual impairment [Recovered/Resolved]
  - Speech disorder [Recovered/Resolved]
  - Hypertension [Recovered/Resolved]
  - Musculoskeletal pain [Recovered/Resolved]
  - Neck pain [Recovered/Resolved]
  - Alopecia [Not Recovered/Not Resolved]

NARRATIVE: CASE EVENT DATE: 20100722
